FAERS Safety Report 20956732 (Version 1)
Quarter: 2022Q2

REPORT INFORMATION
  Report Type: Report from Study
  Country: US (occurrence: US)
  Receive Date: 20220614
  Receipt Date: 20220614
  Transmission Date: 20220721
  Serious: No
  Sender: FDA-Public Use
  Company Number: US-NOVARTISTESTPH-NVSC2022US135315

PATIENT
  Age: 40 Year
  Sex: Female

DRUGS (1)
  1. IBUPROFEN [Suspect]
     Active Substance: IBUPROFEN
     Indication: Tendonitis
     Dosage: UNK
     Route: 065

REACTIONS (5)
  - Insomnia [Unknown]
  - Constipation [Unknown]
  - Diarrhoea [Unknown]
  - Hyperhidrosis [Unknown]
  - Drug ineffective for unapproved indication [Unknown]
